FAERS Safety Report 19393706 (Version 1)
Quarter: 2021Q2

REPORT INFORMATION
  Report Type: Spontaneous
  Country: US (occurrence: US)
  Receive Date: 20210608
  Receipt Date: 20210608
  Transmission Date: 20210717
  Serious: Yes (Hospitalization)
  Sender: FDA-Public Use
  Company Number: None

PATIENT
  Age: 62 Year
  Sex: Female

DRUGS (18)
  1. GABAPENTIN. [Concomitant]
     Active Substance: GABAPENTIN
  2. ONDANSETRON [Concomitant]
     Active Substance: ONDANSETRON
  3. ALBUTEROL. [Concomitant]
     Active Substance: ALBUTEROL
  4. CLONAZEP [Concomitant]
  5. DICYCLOMINE [Concomitant]
     Active Substance: DICYCLOMINE HYDROCHLORIDE
  6. FOLIC ACID. [Concomitant]
     Active Substance: FOLIC ACID
  7. LEVOTHYROXINE. [Concomitant]
     Active Substance: LEVOTHYROXINE
  8. BREO ELLIPTA INHA [Concomitant]
  9. NAMUMETONE [Concomitant]
  10. AMLORIDE [Concomitant]
  11. LEFLUNOMIDE. [Concomitant]
     Active Substance: LEFLUNOMIDE
  12. NITROFURANTN [Concomitant]
     Active Substance: NITROFURANTOIN
  13. OXYCODONE [Concomitant]
     Active Substance: OXYCODONE
  14. PREDNISONE. [Concomitant]
     Active Substance: PREDNISONE
  15. BENLYSTA [Suspect]
     Active Substance: BELIMUMAB
     Indication: SYSTEMIC LUPUS ERYTHEMATOSUS
     Route: 058
     Dates: start: 20191016
  16. ADZENYS XR [Concomitant]
  17. HYDROXYCLOR [Concomitant]
  18. PANTOPRAZOLE [Concomitant]
     Active Substance: PANTOPRAZOLE

REACTIONS (2)
  - Hip fracture [None]
  - Osteomyelitis [None]

NARRATIVE: CASE EVENT DATE: 20210416
